FAERS Safety Report 7014779-6 (Version None)
Quarter: 2010Q3

REPORT INFORMATION
  Report Type: 
  Country: None (occurrence: None)
  Receive Date: 20100927
  Receipt Date: 20100915
  Transmission Date: 20110219
  Serious: Yes (Other)
  Sender: FDA-Public Use
  Company Number: JP-BRISTOL-MYERS SQUIBB COMPANY-14456107

PATIENT
  Age: 67 Year
  Sex: Male

DRUGS (2)
  1. PARAPLATIN [Suspect]
     Indication: LUNG NEOPLASM MALIGNANT
     Dosage: TILL 12DEC2008
     Route: 041
     Dates: start: 20081031, end: 20081031
  2. TAXOL [Suspect]
     Indication: LUNG NEOPLASM MALIGNANT
     Dosage: TILL 12DEC2008
     Route: 041
     Dates: start: 20081031, end: 20081031

REACTIONS (1)
  - PNEUMOTHORAX [None]
